FAERS Safety Report 6574998-X (Version None)
Quarter: 2010Q1

REPORT INFORMATION
  Report Type: 
  Country: None (occurrence: None)
  Receive Date: 20100201
  Receipt Date: 20100118
  Transmission Date: 20100710
  Serious: Yes (Other)
  Sender: FDA-Public Use
  Company Number: DE-1180607

PATIENT
  Age: 73 Year
  Sex: Male

DRUGS (2)
  1. FLUORESCEIN SODIUM (FLUORESCEIN SODIUM) 10 % INJECTION SOLUTION [Suspect]
     Dosage: 5 ML, INTRAVENOUS BOLUS
     Route: 040
  2. ASPIRIN [Concomitant]

REACTIONS (9)
  - ASTHENIA [None]
  - BLOOD PRESSURE IMMEASURABLE [None]
  - DIZZINESS [None]
  - FATIGUE [None]
  - HYPERHIDROSIS [None]
  - LOSS OF CONSCIOUSNESS [None]
  - PALLOR [None]
  - PULSE ABSENT [None]
  - SYNCOPE [None]
